FAERS Safety Report 5052072-1 (Version None)
Quarter: 2006Q3

REPORT INFORMATION
  Report Type: 
  Country: None (occurrence: None)
  Receive Date: 20060711
  Receipt Date: 20060627
  Transmission Date: 20061208
  Serious: Yes (Other)
  Sender: FDA-Public Use
  Company Number: A-CH2006-12522

PATIENT
  Age: 7 Year
  Sex: Male
  Weight: 20.5 kg

DRUGS (13)
  1. TRACLEER [Suspect]
     Indication: CAVOPULMONARY ANASTOMOSIS
     Dosage: 40 MG BID ORAL
     Route: 048
     Dates: start: 20060613
  2. DIURETICS [Concomitant]
  3. NILSTAT (NYSTATIN) [Concomitant]
  4. VIAGRA [Concomitant]
  5. CARVEDILOL [Concomitant]
  6. ALDACTONE [Concomitant]
  7. ENOXAPARIN SODIUM [Concomitant]
  8. ASPIRIN [Concomitant]
  9. ZESTRIL [Concomitant]
  10. VITAMIN B1 TAB [Concomitant]
  11. ZANTAC [Concomitant]
  12. LASIX [Concomitant]
  13. MAGNESIUM SULFATE [Concomitant]

REACTIONS (1)
  - CARDIAC DISORDER [None]
